FAERS Safety Report 13536506 (Version 2)
Quarter: 2017Q2

REPORT INFORMATION
  Report Type: Report from Study
  Country: FR (occurrence: FR)
  Receive Date: 20170511
  Receipt Date: 20170630
  Transmission Date: 20170830
  Serious: Yes (Hospitalization)
  Sender: FDA-Public Use
  Company Number: FR-SA-2017SA081943

PATIENT
  Age: 73 Year
  Sex: Male

DRUGS (4)
  1. CAMPATH [Suspect]
     Active Substance: ALEMTUZUMAB
     Indication: T-CELL PROLYMPHOCYTIC LEUKAEMIA
     Dosage: 1 INJECTION PER WEEK
     Route: 041
     Dates: start: 2017
  2. CAMPATH [Suspect]
     Active Substance: ALEMTUZUMAB
     Indication: T-CELL PROLYMPHOCYTIC LEUKAEMIA
     Dosage: DOSE: 3 INJ PER WEEK
     Route: 041
     Dates: start: 201701, end: 201701
  3. CAMPATH [Suspect]
     Active Substance: ALEMTUZUMAB
     Indication: T-CELL PROLYMPHOCYTIC LEUKAEMIA
     Dosage: DOSE: 2 INJ/WEEK
     Route: 041
     Dates: start: 201701, end: 20170125
  4. CAMPATH [Suspect]
     Active Substance: ALEMTUZUMAB
     Indication: T-CELL PROLYMPHOCYTIC LEUKAEMIA
     Dosage: DOSE: 1INJ/WEEK
     Route: 041
     Dates: start: 201702

REACTIONS (3)
  - Thrombocytopenia [Recovered/Resolved]
  - Febrile bone marrow aplasia [Recovered/Resolved]
  - Drug ineffective [Unknown]

NARRATIVE: CASE EVENT DATE: 20170201
